FAERS Safety Report 17414912 (Version 5)
Quarter: 2020Q2

REPORT INFORMATION
  Report Type: Spontaneous
  Country: US (occurrence: US)
  Receive Date: 20200213
  Receipt Date: 20200407
  Transmission Date: 20200713
  Serious: Yes (Hospitalization, Other)
  Sender: FDA-Public Use
  Company Number: US-GILEAD-2020-0450823

PATIENT
  Age: 57 Year
  Sex: Female

DRUGS (13)
  1. QUETIAPINE. [Concomitant]
     Active Substance: QUETIAPINE
     Dosage: 100 MG
     Dates: start: 201810
  2. BIKTARVY [Suspect]
     Active Substance: BICTEGRAVIR SODIUM\EMTRICITABINE\TENOFOVIR ALAFENAMIDE FUMARATE
     Indication: HIV INFECTION
     Dosage: UNK, STARTED ABOUT 1 MONTH PRIOR TO EVENT
     Route: 065
     Dates: start: 201911, end: 201912
  3. TRAMADOL. [Concomitant]
     Active Substance: TRAMADOL
     Dosage: 50 MG
     Dates: start: 201205
  4. DULOXETINE. [Concomitant]
     Active Substance: DULOXETINE
     Dosage: 30 MG
     Dates: start: 201810
  5. GABAPENTIN. [Concomitant]
     Active Substance: GABAPENTIN
     Dosage: 100 MG
     Dates: start: 201810
  6. HYDRALAZINE [Concomitant]
     Active Substance: HYDRALAZINE HYDROCHLORIDE
     Indication: HYPERTENSION
     Dosage: 25 MG
     Dates: start: 201501
  7. ASPIRIN [ACETYLSALICYLIC ACID] [Concomitant]
     Active Substance: ASPIRIN
     Dosage: 325 MG
     Dates: start: 201504
  8. AMLODIPINE [Concomitant]
     Active Substance: AMLODIPINE BESYLATE
     Indication: HYPERTENSION
     Dosage: 10 MG
     Dates: start: 201205
  9. HYDROCHLOROTHIAZIDE. [Concomitant]
     Active Substance: HYDROCHLOROTHIAZIDE
     Indication: HYPERTENSION
     Dosage: 25 MG
     Dates: start: 201205
  10. METRONIDAZOLE. [Concomitant]
     Active Substance: METRONIDAZOLE
     Indication: BACTERIAL VAGINOSIS
  11. POTASSIUM CHLORIDE. [Concomitant]
     Active Substance: POTASSIUM CHLORIDE
     Dosage: 20 MG
     Dates: start: 201307
  12. MELOXICAM. [Concomitant]
     Active Substance: MELOXICAM
     Dosage: 15 MG
     Dates: start: 201810
  13. IBUPROFEN. [Concomitant]
     Active Substance: IBUPROFEN
     Dosage: 800 MG

REACTIONS (1)
  - Stevens-Johnson syndrome [Recovering/Resolving]

NARRATIVE: CASE EVENT DATE: 20191223
